FAERS Safety Report 4946977-7 (Version None)
Quarter: 2006Q1

REPORT INFORMATION
  Report Type: 
  Country: None (occurrence: None)
  Receive Date: 20060313
  Receipt Date: 20060227
  Transmission Date: 20060701
  Serious: Yes (Hospitalization)
  Sender: FDA-Public Use
  Company Number: 2006BI003311

PATIENT
  Age: 53 Year
  Sex: Female
  Weight: 95.2554 kg

DRUGS (12)
  1. AVONEX [Suspect]
     Indication: MULTIPLE SCLEROSIS
     Dosage: 30 UG; QW; IM
     Route: 030
     Dates: start: 20010501, end: 20030801
  2. AVONEX [Suspect]
     Indication: MULTIPLE SCLEROSIS
     Dosage: 30 UG; QW; IM
     Route: 030
     Dates: start: 20030801, end: 20040401
  3. ACEBUTOLOL [Concomitant]
  4. HYDROCHLOROTHIAZIDE [Concomitant]
  5. NASACORT [Concomitant]
  6. VENTOLIN [Concomitant]
  7. PULMICORT [Concomitant]
  8. CLONAZEPAM [Concomitant]
  9. ELAVIL [Concomitant]
  10. ZYRTEC [Concomitant]
  11. CLINDAMYCIN [Concomitant]
  12. LEVSIN [Concomitant]

REACTIONS (14)
  - BLISTER [None]
  - BREAST CANCER FEMALE [None]
  - CAPILLARY DISORDER [None]
  - CONTUSION [None]
  - DIABETES MELLITUS NON-INSULIN-DEPENDENT [None]
  - FLUID RETENTION [None]
  - HYPOAESTHESIA [None]
  - METASTASES TO LYMPH NODES [None]
  - NIPPLE DISORDER [None]
  - NIPPLE PAIN [None]
  - POST PROCEDURAL COMPLICATION [None]
  - PRECANCEROUS CELLS PRESENT [None]
  - PROCEDURAL PAIN [None]
  - WOUND SECRETION [None]
